FAERS Safety Report 7642510-X (Version None)
Quarter: 2011Q3

REPORT INFORMATION
  Report Type: 
  Country: None (occurrence: None)
  Receive Date: 20110728
  Receipt Date: 20110722
  Transmission Date: 20111222
  Serious: Yes (Hospitalization)
  Sender: FDA-Public Use
  Company Number: GB-TEVA-291947ISR

PATIENT
  Age: 8 Year
  Sex: Female

DRUGS (1)
  1. VALPROIC ACID [Suspect]
     Indication: GRAND MAL CONVULSION
     Dosage: 800 MILLIGRAM;

REACTIONS (7)
  - BONE DENSITY DECREASED [None]
  - FANCONI SYNDROME ACQUIRED [None]
  - AMINO ACID LEVEL INCREASED [None]
  - FEMUR FRACTURE [None]
  - RENAL GLYCOSURIA [None]
  - HYPOPHOSPHATAEMIA [None]
  - HYPERCALCIURIA [None]
